FAERS Safety Report 19084316 (Version 2)
Quarter: 2021Q2

REPORT INFORMATION
  Report Type: Spontaneous
  Country: DE (occurrence: DE)
  Receive Date: 20210401
  Receipt Date: 20210407
  Transmission Date: 20210717
  Serious: Yes (Other)
  Sender: FDA-Public Use
  Company Number: DE-JNJFOC-20210351334

PATIENT
  Age: 45 Year
  Sex: Male

DRUGS (7)
  1. RITUXIMAB. [Suspect]
     Active Substance: RITUXIMAB
     Route: 065
  2. RITUXIMAB. [Suspect]
     Active Substance: RITUXIMAB
     Indication: GRANULOMATOSIS WITH POLYANGIITIS
     Dosage: 1000 MG AT WEEKS 0?2 AND THEN 500 MG EVERY 6 MONTHS THEREAFTER
     Route: 065
     Dates: start: 2010
  3. AZATHIOPRINE. [Suspect]
     Active Substance: AZATHIOPRINE
     Indication: GRANULOMATOSIS WITH POLYANGIITIS
     Dosage: 150 MG/DAY
     Route: 065
     Dates: start: 2010
  4. REMICADE [Suspect]
     Active Substance: INFLIXIMAB
     Dosage: WEEK 6
     Route: 042
  5. SULFAMETHOXAZOLE;TRIMETHOPRIM [Concomitant]
     Active Substance: SULFAMETHOXAZOLE\TRIMETHOPRIM
     Indication: INFECTION PROPHYLAXIS
     Dosage: UNK?10 YEARS
     Route: 065
  6. REMICADE [Suspect]
     Active Substance: INFLIXIMAB
     Dosage: WEEK 2
     Route: 042
  7. REMICADE [Suspect]
     Active Substance: INFLIXIMAB
     Indication: GRANULOMATOSIS WITH POLYANGIITIS
     Dosage: 400 MG, AT WEEKS 0?2?6 AND EVERY 6 WEEKS THEREAFTER
     Route: 042
     Dates: start: 2011

REACTIONS (6)
  - Product use in unapproved indication [Unknown]
  - Antineutrophil cytoplasmic antibody increased [Unknown]
  - Orbital granuloma [Recovering/Resolving]
  - Disease progression [Recovering/Resolving]
  - Granulomatosis with polyangiitis [Recovering/Resolving]
  - Off label use [Unknown]
